FAERS Safety Report 7567991-1 (Version None)
Quarter: 2011Q2

REPORT INFORMATION
  Report Type: 
  Country: None (occurrence: None)
  Receive Date: 20110623
  Receipt Date: 20110609
  Transmission Date: 20111010
  Serious: Yes (Other)
  Sender: FDA-Public Use
  Company Number: FR-CELGENEUS-056-21880-11031732

PATIENT

DRUGS (4)
  1. REVLIMID [Suspect]
     Indication: MULTIPLE MYELOMA
     Route: 048
  2. FLUDARABINE PHOSPHATE [Concomitant]
     Indication: MULTIPLE MYELOMA
     Route: 065
  3. ANTI-LYMPHOCYTIC SERUM [Concomitant]
     Indication: MULTIPLE MYELOMA
     Route: 065
  4. BUSILVEX [Concomitant]
     Indication: MULTIPLE MYELOMA
     Route: 065

REACTIONS (5)
  - ASTHENIA [None]
  - ACUTE GRAFT VERSUS HOST DISEASE [None]
  - DISEASE PROGRESSION [None]
  - RENAL FAILURE [None]
  - HAEMATOTOXICITY [None]
